FAERS Safety Report 8759786 (Version 1)
Quarter: 2012Q4

REPORT INFORMATION
  Report Type: 
  Country: US (occurrence: US)
  Receive Date: 20120829
  Receipt Date: 20120829
  Transmission Date: 20130627
  Serious: Yes (Other)
  Sender: FDA-Public Use
  Company Number: US-ASTRAZENECA-2012SE60305

PATIENT
  Age: 36 Year
  Sex: Female
  Weight: 82.6 kg

DRUGS (12)
  1. NEXIUM [Suspect]
     Indication: DYSPEPSIA
     Route: 048
  2. NEXIUM [Suspect]
     Indication: GASTROOESOPHAGEAL REFLUX DISEASE
     Route: 048
  3. SEROQUEL XR [Suspect]
     Route: 048
  4. CRESTOR [Suspect]
     Indication: BLOOD CHOLESTEROL ABNORMAL
     Route: 048
  5. BENTYL [Concomitant]
     Dosage: GENERIC
  6. TRAMADOL [Concomitant]
  7. LAMICTAL [Concomitant]
     Dosage: GENERIC
  8. ADDERALL [Concomitant]
     Dosage: GENERIC
  9. XANAX [Concomitant]
     Dosage: GENERIC
  10. PHENERGAN [Concomitant]
     Dosage: GENERIC
  11. ALBUTEROL [Concomitant]
  12. TYLENOL 4 [Concomitant]

REACTIONS (3)
  - Leukaemia [Unknown]
  - Malaise [Unknown]
  - Off label use [Unknown]
